FAERS Safety Report 8390716-7 (Version None)
Quarter: 2012Q2

REPORT INFORMATION
  Report Type: 
  Country: None (occurrence: None)
  Receive Date: 20120529
  Receipt Date: 20120413
  Transmission Date: 20120825
  Serious: Yes (Other)
  Sender: FDA-Public Use
  Company Number: US-JNJFOC-20120404436

PATIENT
  Sex: Female

DRUGS (5)
  1. GRANULOCYTE COLONY STIMULATING FACTOR [Suspect]
     Indication: PALLIATIVE CARE
     Route: 065
  2. CYCLOPHOSPHAMIDE [Suspect]
     Route: 048
  3. DOXORUBICIN HCL [Suspect]
     Indication: BREAST CANCER
     Dosage: 60 MG/M2 FOR STANDARD ARM AND 24 MG/M2 FOR CONTINUOUS ARM
     Route: 042
  4. CYCLOPHOSPHAMIDE [Suspect]
     Indication: BREAST CANCER
     Route: 065
  5. PACLITAXEL [Suspect]
     Indication: BREAST CANCER
     Route: 065

REACTIONS (35)
  - HYPONATRAEMIA [None]
  - LYMPHOPENIA [None]
  - HYPOKALAEMIA [None]
  - LEUKOPENIA [None]
  - PALMAR-PLANTAR ERYTHRODYSAESTHESIA SYNDROME [None]
  - DECREASED APPETITE [None]
  - MALAISE [None]
  - LETHARGY [None]
  - PAIN [None]
  - SYNCOPE [None]
  - THROMBOCYTOPENIA [None]
  - NEUTROPENIA [None]
  - ANXIETY [None]
  - BONE PAIN [None]
  - CONSTIPATION [None]
  - DEPRESSION [None]
  - INFECTION [None]
  - PERIPHERAL SENSORY NEUROPATHY [None]
  - EMBOLISM [None]
  - VOMITING [None]
  - DIARRHOEA [None]
  - NAUSEA [None]
  - GRANULOCYTOPENIA [None]
  - THROMBOSIS [None]
  - HEADACHE [None]
  - STOMATITIS [None]
  - PHARYNGITIS [None]
  - ANAEMIA [None]
  - INTESTINAL OBSTRUCTION [None]
  - AGITATION [None]
  - DYSPNOEA [None]
  - FEBRILE NEUTROPENIA [None]
  - GASTROINTESTINAL INFLAMMATION [None]
  - HYPERGLYCAEMIA [None]
  - FATIGUE [None]
